FAERS Safety Report 25743641 (Version 1)
Quarter: 2025Q3

REPORT INFORMATION
  Report Type: Spontaneous
  Country: US (occurrence: US)
  Receive Date: 20250831
  Receipt Date: 20250831
  Transmission Date: 20251021
  Serious: No
  Sender: JOHNSON AND JOHNSON
  Company Number: US-JNJFOC-20250829932

PATIENT
  Sex: Female

DRUGS (1)
  1. OPSUMIT [Suspect]
     Active Substance: MACITENTAN
     Indication: Pulmonary arterial hypertension
     Route: 048

REACTIONS (6)
  - Drug dose omission by device [Unknown]
  - Product barcode issue [Unknown]
  - Product expiration date issue [Unknown]
  - Physical product label issue [Unknown]
  - Product lot number issue [Unknown]
  - Product packaging difficult to open [Unknown]
